FAERS Safety Report 16689884 (Version 3)
Quarter: 2022Q1

REPORT INFORMATION
  Report Type: Report from Study
  Country: FR (occurrence: FR)
  Receive Date: 20190809
  Receipt Date: 20220130
  Transmission Date: 20220424
  Serious: Yes (Other)
  Sender: FDA-Public Use
  Company Number: FR-JAZZ-2019-FR-008231

PATIENT

DRUGS (3)
  1. DEFITELIO [Suspect]
     Active Substance: DEFIBROTIDE SODIUM
     Indication: Venoocclusive liver disease
     Dosage: 22.5 MG/KG, QD
     Route: 042
     Dates: start: 20180921, end: 20180925
  2. URSODIOL [Suspect]
     Active Substance: URSODIOL
     Indication: Venoocclusive disease
  3. HEPARIN [Suspect]
     Active Substance: HEPARIN SODIUM
     Indication: Prophylaxis
     Route: 065

REACTIONS (6)
  - Coagulopathy [Unknown]
  - Acute graft versus host disease [Unknown]
  - Pneumonia [Unknown]
  - Influenza [Unknown]
  - Cytomegalovirus infection [Unknown]
  - Off label use [Unknown]

NARRATIVE: CASE EVENT DATE: 20180921
